FAERS Safety Report 9175234 (Version 1)
Quarter: 2013Q1

REPORT INFORMATION
  Report Type: Report from Study
  Country: BE (occurrence: BE)
  Receive Date: 20130320
  Receipt Date: 20130320
  Transmission Date: 20140127
  Serious: Yes (Other)
  Sender: FDA-Public Use
  Company Number: BE-ROCHE-1186354

PATIENT
  Age: 65 Year
  Sex: Female
  Weight: 60 kg

DRUGS (7)
  1. ZELBORAF [Suspect]
     Indication: METASTATIC MALIGNANT MELANOMA
     Route: 048
     Dates: start: 20121214
  2. ZELBORAF [Suspect]
     Route: 048
  3. CRESTOR [Concomitant]
     Indication: HYPERCHOLESTEROLAEMIA
     Route: 048
  4. LORAZEPAM [Concomitant]
     Indication: ANXIETY
     Route: 048
  5. BROMAZEPAM [Concomitant]
     Indication: ANXIETY
     Route: 048
  6. ASPIRINE [Concomitant]
     Indication: CARDIOVASCULAR EVENT PROPHYLAXIS
     Route: 048
  7. ZOLPIDEM [Concomitant]
     Indication: SLEEP DISORDER
     Route: 048

REACTIONS (3)
  - Skin irritation [Unknown]
  - Decreased appetite [Recovered/Resolved]
  - Fatigue [Recovered/Resolved]
